FAERS Safety Report 23704264 (Version 1)
Quarter: 2024Q2

REPORT INFORMATION
  Report Type: Spontaneous
  Country: PE (occurrence: PE)
  Receive Date: 20240404
  Receipt Date: 20240404
  Transmission Date: 20240716
  Serious: Yes (Other)
  Sender: FDA-Public Use
  Company Number: PE-SUN PHARMACEUTICAL INDUSTRIES LTD-2024R1-439449

PATIENT
  Age: 29 Year
  Sex: Male
  Weight: 28 kg

DRUGS (2)
  1. PREDNISONE [Suspect]
     Active Substance: PREDNISONE
     Indication: Polymyositis
     Dosage: 50 MILLIGRAM, EVERY EIGHT HOURS
     Route: 048
  2. PREDNISONE [Suspect]
     Active Substance: PREDNISONE
     Dosage: 50 MILLIGRAM, EVERY EIGHT HOURS
     Route: 048

REACTIONS (2)
  - Intestinal obstruction [Unknown]
  - Strongyloidiasis [Unknown]
